FAERS Safety Report 7802101-4 (Version None)
Quarter: 2011Q4

REPORT INFORMATION
  Report Type: 
  Country: None (occurrence: None)
  Receive Date: 20111007
  Receipt Date: 20110922
  Transmission Date: 20120403
  Serious: Yes (Other)
  Sender: FDA-Public Use
  Company Number: PHHY2011JP46242

PATIENT
  Sex: Male
  Weight: 70 kg

DRUGS (13)
  1. ALISKIREN [Suspect]
     Dosage: 300 MG, QD
     Route: 048
     Dates: start: 20100622, end: 20101017
  2. PERINDOPRIL ERBUMINE [Concomitant]
     Dosage: 8 MG, UNK
     Route: 048
     Dates: start: 20090501
  3. NITRODERM [Concomitant]
     Dosage: 25 MG, UNK
     Route: 062
     Dates: start: 20091209
  4. ATELEC [Concomitant]
     Indication: HYPERTENSION
     Dosage: 20 MG, UNK
     Route: 048
     Dates: start: 20100203, end: 20100428
  5. CARVEDILOL [Concomitant]
     Indication: HYPERTENSION
     Dosage: 10 MG, UNK
     Route: 048
     Dates: start: 20090501
  6. DOXAZOSIN MESYLATE [Concomitant]
     Dosage: 8 MG, UNK
     Route: 048
  7. LANSOPRAZOLE [Concomitant]
     Indication: PROPHYLAXIS
     Dosage: 15 MG, UNK
     Route: 048
     Dates: start: 20100312, end: 20100831
  8. ALISKIREN [Suspect]
     Dosage: 150 MG, QD
     Route: 048
     Dates: start: 20100320, end: 20100621
  9. DOXAZOSIN MESYLATE [Concomitant]
     Indication: HYPERTENSION
     Dosage: 1 MG, UNK
     Route: 048
     Dates: start: 20091209
  10. DOXAZOSIN MESYLATE [Concomitant]
     Dosage: 2 MG, UNK
     Route: 048
  11. LIPITOR [Concomitant]
     Dosage: 10 MG, UNK
     Route: 048
     Dates: start: 20090513
  12. EPOETIN ALFA [Suspect]
  13. PERINDOPRIL ERBUMINE [Concomitant]
     Dosage: 4 MG, UNK

REACTIONS (2)
  - BLOOD PRESSURE FLUCTUATION [None]
  - RENAL FAILURE CHRONIC [None]
